FAERS Safety Report 10161879 (Version 1)
Quarter: 2014Q2

REPORT INFORMATION
  Report Type: Spontaneous
  Country: CH (occurrence: CH)
  Receive Date: 20140509
  Receipt Date: 20140509
  Transmission Date: 20141212
  Serious: Yes (Hospitalization)
  Sender: FDA-Public Use
  Company Number: CH-JNJFOC-20140419890

PATIENT
  Age: 65 Year
  Sex: Male
  Weight: 77.4 kg

DRUGS (14)
  1. HALDOL [Suspect]
     Indication: PRODUCT USED FOR UNKNOWN INDICATION
     Route: 048
     Dates: end: 20140317
  2. OXAZEPAM [Suspect]
     Indication: PRODUCT USED FOR UNKNOWN INDICATION
     Route: 048
     Dates: end: 20140317
  3. MIRTAZAPINE [Suspect]
     Indication: PRODUCT USED FOR UNKNOWN INDICATION
     Route: 048
  4. ASPIRIN CARDIO [Concomitant]
     Route: 048
  5. BELOC (METOPROLOL TARTRATE) [Concomitant]
     Route: 048
  6. AMLODIPINE [Concomitant]
     Route: 048
  7. PANTOZOL [Concomitant]
     Route: 048
  8. METFORMIN [Concomitant]
     Route: 048
  9. AMARYL [Concomitant]
     Route: 048
  10. DEPAKINE CHRONO [Concomitant]
     Route: 048
  11. DEPAKINE [Concomitant]
     Route: 048
  12. RISPERDAL [Concomitant]
     Route: 048
  13. FORTECORTIN (DEXAMETHASONE) [Concomitant]
     Route: 048
  14. BACTRIM [Concomitant]
     Route: 048

REACTIONS (2)
  - Altered state of consciousness [Recovered/Resolved]
  - Somnolence [Recovered/Resolved]
